FAERS Safety Report 24132278 (Version 1)
Quarter: 2024Q3

REPORT INFORMATION
  Report Type: Spontaneous
  Country: US (occurrence: None)
  Receive Date: 20240723
  Receipt Date: 20240723
  Transmission Date: 20241017
  Serious: Yes (unspecified)
  Sender: Public
  Company Number: None

PATIENT
  Age: 35 Year
  Sex: Female
  Weight: 82.35 kg

DRUGS (1)
  1. COSMETICS [Suspect]
     Active Substance: COSMETICS
     Indication: Acrochordon excision
     Dates: start: 20240722, end: 20240722

REACTIONS (4)
  - Acrochordon excision [None]
  - Application site pain [None]
  - Application site swelling [None]
  - Chemical burn [None]

NARRATIVE: CASE EVENT DATE: 20240722
